FAERS Safety Report 25477746 (Version 1)
Quarter: 2025Q2

REPORT INFORMATION
  Report Type: Spontaneous
  Country: US (occurrence: US)
  Receive Date: 20250625
  Receipt Date: 20250625
  Transmission Date: 20250716
  Serious: No
  Sender: MYLAN
  Company Number: US-MYLANLABS-2025M1052800

PATIENT
  Age: 28 Year
  Sex: Female

DRUGS (4)
  1. METHYLPHENIDATE [Suspect]
     Active Substance: METHYLPHENIDATE
     Indication: Attention deficit hyperactivity disorder
  2. METHYLPHENIDATE [Suspect]
     Active Substance: METHYLPHENIDATE
     Route: 062
  3. METHYLPHENIDATE [Suspect]
     Active Substance: METHYLPHENIDATE
     Route: 062
  4. METHYLPHENIDATE [Suspect]
     Active Substance: METHYLPHENIDATE

REACTIONS (1)
  - Off label use [Unknown]
